FAERS Safety Report 9729238 (Version 1)
Quarter: 2013Q4

REPORT INFORMATION
  Report Type: Spontaneous
  Country: RO (occurrence: RO)
  Receive Date: 20131204
  Receipt Date: 20131204
  Transmission Date: 20140711
  Serious: Yes (Death)
  Sender: FDA-Public Use
  Company Number: RO-BAYER-2013-145372

PATIENT
  Age: 52 Year
  Sex: Male
  Weight: 115 kg

DRUGS (5)
  1. ASPIRIN CARDIO [Suspect]
     Indication: ANTIPLATELET THERAPY
     Route: 048
  2. BISOPROLOL [Suspect]
  3. PERINDOPRIL [Suspect]
  4. ATORVASTATIN [Suspect]
  5. AMLODIPINE [Suspect]

REACTIONS (1)
  - Sudden cardiac death [Fatal]
